FAERS Safety Report 6458076-6 (Version None)
Quarter: 2009Q4

REPORT INFORMATION
  Report Type: 
  Country: None (occurrence: None)
  Receive Date: 20091125
  Receipt Date: 20091116
  Transmission Date: 20100525
  Serious: Yes (Hospitalization)
  Sender: FDA-Public Use
  Company Number: UY-ABBOTT-09P-168-0607405-00

PATIENT
  Sex: Male
  Weight: 56 kg

DRUGS (2)
  1. ZEMPLAR [Suspect]
     Indication: HYPERPARATHYROIDISM SECONDARY
     Route: 042
     Dates: start: 20080407, end: 20091012
  2. HEPARIN [Concomitant]
     Indication: DRUG USE FOR UNKNOWN INDICATION

REACTIONS (9)
  - ABDOMINAL PAIN UPPER [None]
  - ARTERIOVENOUS FISTULA THROMBOSIS [None]
  - DUODENAL ULCER [None]
  - DYSPEPSIA [None]
  - GASTRODUODENITIS [None]
  - HAEMORRHAGE [None]
  - HYPERKALAEMIA [None]
  - HYPOVOLAEMIC SHOCK [None]
  - MELAENA [None]
